FAERS Safety Report 21132832 (Version 1)
Quarter: 2022Q3

REPORT INFORMATION
  Report Type: Spontaneous
  Country: JP (occurrence: JP)
  Receive Date: 20220726
  Receipt Date: 20220726
  Transmission Date: 20221026
  Serious: Yes (Other)
  Sender: FDA-Public Use
  Company Number: JP-BRISTOL-MYERS SQUIBB COMPANY-BMS-2018-108185

PATIENT
  Age: 73 Year
  Sex: Female

DRUGS (1)
  1. ORENCIA [Suspect]
     Active Substance: ABATACEPT
     Indication: Product used for unknown indication
     Dosage: UNK UNK, QWK
     Route: 058
     Dates: start: 20181112

REACTIONS (10)
  - Inflammation [Unknown]
  - Injection site haemorrhage [Unknown]
  - Injection site bruising [Unknown]
  - Product administration error [Unknown]
  - Eczema [Recovered/Resolved]
  - Inappropriate schedule of product administration [Unknown]
  - Toxic skin eruption [Unknown]
  - Psoriasis [Recovered/Resolved]
  - Palmoplantar pustulosis [Unknown]
  - Pain [Unknown]

NARRATIVE: CASE EVENT DATE: 20181112
